FAERS Safety Report 8010005-X (Version None)
Quarter: 2011Q4

REPORT INFORMATION
  Report Type: 
  Country: None (occurrence: None)
  Receive Date: 20111221
  Receipt Date: 20111212
  Transmission Date: 20120403
  Serious: Yes (Death, Hospitalization)
  Sender: FDA-Public Use
  Company Number: 2011MA017516

PATIENT
  Age: 65 Year
  Sex: Female

DRUGS (4)
  1. DOXORUBICIN HCL [Suspect]
     Indication: KAPOSI'S SARCOMA
  2. ACYCLOVIR [Suspect]
     Indication: KAPOSI'S SARCOMA
     Dosage: ;UNK;UNK
  3. RITUXIMAB [Suspect]
     Indication: B-CELL LYMPHOMA
  4. CYCLOPHOSPHAMIDE [Suspect]
     Indication: B-CELL LYMPHOMA

REACTIONS (6)
  - VOMITING [None]
  - PLEURAL EFFUSION [None]
  - RENAL FAILURE ACUTE [None]
  - KAPOSI'S SARCOMA [None]
  - NEOPLASM PROGRESSION [None]
  - NAUSEA [None]
